FAERS Safety Report 15243007 (Version 2)
Quarter: 2018Q3

REPORT INFORMATION
  Report Type: Spontaneous
  Country: SK (occurrence: SK)
  Receive Date: 20180806
  Receipt Date: 20180813
  Transmission Date: 20181010
  Serious: Yes (Hospitalization, Other)
  Sender: FDA-Public Use
  Company Number: SK-CELLTRION INC.-2018SK021671

PATIENT

DRUGS (4)
  1. METHYLPREDNISOLONE. [Suspect]
     Active Substance: METHYLPREDNISOLONE
     Indication: PSORIASIS
     Dosage: 16 MG/24H
     Route: 048
     Dates: start: 2013
  2. INFLIXIMAB PFIZER (UNKNOWN) [Suspect]
     Active Substance: INFLIXIMAB
     Indication: PSORIASIS
     Dosage: UNK
     Route: 065
     Dates: start: 200701, end: 200805
  3. METHOTREXATE. [Concomitant]
     Active Substance: METHOTREXATE
  4. ETANERCEPT [Suspect]
     Active Substance: ETANERCEPT
     Indication: PSORIASIS
     Dosage: UNK
     Route: 065
     Dates: start: 200805, end: 2009

REACTIONS (10)
  - Progressive multifocal leukoencephalopathy [Unknown]
  - Body temperature increased [Unknown]
  - Hydrothorax [Unknown]
  - Dyspnoea [Unknown]
  - Erythrodermic psoriasis [Unknown]
  - Renal failure [Not Recovered/Not Resolved]
  - Condition aggravated [Unknown]
  - Cardiomyopathy [Unknown]
  - Cachexia [Unknown]
  - Cardiac failure acute [Unknown]

NARRATIVE: CASE EVENT DATE: 2007
